FAERS Safety Report 21552545 (Version 1)
Quarter: 2022Q4

REPORT INFORMATION
  Report Type: Spontaneous
  Country: CN (occurrence: CN)
  Receive Date: 20221104
  Receipt Date: 20221104
  Transmission Date: 20230113
  Serious: No
  Sender: FDA-Public Use
  Company Number: CN-ORGANON-O2211CHN000227

PATIENT
  Sex: Male

DRUGS (1)
  1. NASONEX [Suspect]
     Active Substance: MOMETASONE FUROATE
     Dosage: UNK
     Route: 048

REACTIONS (4)
  - Device malfunction [Unknown]
  - Incorrect route of product administration [Unknown]
  - Device leakage [Unknown]
  - Poor quality device used [Unknown]
